FAERS Safety Report 7653540-6 (Version None)
Quarter: 2011Q3

REPORT INFORMATION
  Report Type: 
  Country: None (occurrence: None)
  Receive Date: 20110803
  Receipt Date: 20110726
  Transmission Date: 20111222
  Serious: Yes (Death)
  Sender: FDA-Public Use
  Company Number: JP-PFIZER INC-2011167593

PATIENT
  Age: 53 Year
  Sex: Female

DRUGS (6)
  1. METALCAPTASE [Concomitant]
     Indication: COLLAGEN DISORDER
  2. ZITHROMAX [Suspect]
     Indication: PYREXIA
     Dosage: UNK
     Route: 048
     Dates: start: 20110706, end: 20110706
  3. PREDNISOLONE [Concomitant]
     Indication: COLLAGEN DISORDER
  4. TADALAFIL [Concomitant]
     Indication: PULMONARY HYPERTENSION
  5. DEXTROMETHORPHAN HYDROBROMIDE [Concomitant]
     Indication: COUGH
  6. THEO-DUR [Concomitant]
     Indication: COUGH

REACTIONS (4)
  - NAUSEA [None]
  - FEELING COLD [None]
  - SUDDEN DEATH [None]
  - VOMITING [None]
